FAERS Safety Report 8147716-1 (Version None)
Quarter: 2012Q1

REPORT INFORMATION
  Report Type: 
  Country: None (occurrence: None)
  Receive Date: 20120218
  Receipt Date: 20110309
  Transmission Date: 20120608
  Serious: No
  Sender: FDA-Public Use
  Company Number: US-ALLERGAN-1103355US

PATIENT
  Age: 41 Year
  Sex: Female

DRUGS (6)
  1. GLUCOSAMINE [Concomitant]
  2. BOTOX COSMETIC [Suspect]
     Indication: SKIN WRINKLING
     Dosage: 10 UNITS, SINGLE
     Dates: start: 20110209, end: 20110209
  3. CALCIUM [Concomitant]
  4. VITAMIN B COMPLEX CAP [Concomitant]
  5. CHONDROITIN [Concomitant]
  6. VITAMIN TAB [Concomitant]

REACTIONS (3)
  - HEADACHE [None]
  - PHARYNGEAL OEDEMA [None]
  - OROPHARYNGEAL PAIN [None]
